FAERS Safety Report 11057514 (Version 3)
Quarter: 2016Q3

REPORT INFORMATION
  Report Type: Spontaneous
  Country: MX (occurrence: MX)
  Receive Date: 20150422
  Receipt Date: 20160829
  Transmission Date: 20161109
  Serious: Yes (Other)
  Sender: FDA-Public Use
  Company Number: MX-ALLERGAN-1507232US

PATIENT
  Age: 45 Year
  Sex: Female
  Weight: 85 kg

DRUGS (5)
  1. BOTOX [Suspect]
     Active Substance: ONABOTULINUMTOXINA
     Dosage: 9 UNITS, SINGLE
     Route: 030
     Dates: start: 20140412, end: 20140412
  2. BOTOX [Suspect]
     Active Substance: ONABOTULINUMTOXINA
     Dosage: 7 UNITS, SINGLE
     Route: 030
     Dates: start: 20140412, end: 20140412
  3. BOTOX [Suspect]
     Active Substance: ONABOTULINUMTOXINA
     Indication: SKIN WRINKLING
     Dosage: 53 UNITS, SINGLE
     Route: 030
     Dates: start: 20140412, end: 20140412
  4. BOTOX [Suspect]
     Active Substance: ONABOTULINUMTOXINA
     Dosage: 3 UNITS, SINGLE
     Route: 030
     Dates: start: 20140412, end: 20140412
  5. BOTOX [Suspect]
     Active Substance: ONABOTULINUMTOXINA
     Dosage: 2 UNITS, SINGLE
     Route: 030
     Dates: start: 20140412, end: 20140412

REACTIONS (9)
  - Papule [Recovering/Resolving]
  - Mycobacterial infection [Recovered/Resolved with Sequelae]
  - Granuloma skin [Recovered/Resolved with Sequelae]
  - Atrophy [Unknown]
  - Rash papular [Recovering/Resolving]
  - Body temperature increased [Recovering/Resolving]
  - Off label use [Unknown]
  - Off label use [Unknown]
  - Papule [Recovered/Resolved]

NARRATIVE: CASE EVENT DATE: 20140412
